FAERS Safety Report 11698034 (Version 1)
Quarter: 2015Q4

REPORT INFORMATION
  Report Type: Spontaneous
  Country: US (occurrence: US)
  Receive Date: 20151104
  Receipt Date: 20151104
  Transmission Date: 20160304
  Serious: Yes (Hospitalization, Other)
  Sender: FDA-Public Use
  Company Number: US-PFIZER INC-2015368192

PATIENT
  Age: 37 Year
  Sex: Male

DRUGS (3)
  1. ATENOLOL. [Suspect]
     Active Substance: ATENOLOL
     Dosage: 33.3 MG/KG, UNK
  2. AMLODIPINE BESILATE [Suspect]
     Active Substance: AMLODIPINE BESYLATE
     Dosage: 6.7 MG/KG, UNK
  3. ALPRAZOLAM. [Suspect]
     Active Substance: ALPRAZOLAM
     Dosage: 1 MG/KG, UNK

REACTIONS (5)
  - Overdose [Unknown]
  - Sinus bradycardia [Unknown]
  - Hypotension [Recovered/Resolved]
  - Acidosis [Unknown]
  - Suicide attempt [Unknown]
